FAERS Safety Report 7998415-8 (Version None)
Quarter: 2011Q4

REPORT INFORMATION
  Report Type: 
  Country: None (occurrence: None)
  Receive Date: 20111221
  Receipt Date: 20111006
  Transmission Date: 20120403
  Serious: No
  Sender: FDA-Public Use
  Company Number: US-GLAXOSMITHKLINE-A0947967A

PATIENT
  Age: 56 Year
  Sex: Female

DRUGS (5)
  1. MOTRIN [Concomitant]
  2. TEKTURNA [Concomitant]
  3. SAVELLA [Concomitant]
  4. LOVAZA [Suspect]
     Indication: ARTHRALGIA
     Dosage: 1CAP TWICE PER DAY
     Route: 048
     Dates: start: 20111001
  5. VICODIN [Concomitant]

REACTIONS (1)
  - THERAPEUTIC RESPONSE UNEXPECTED [None]
